FAERS Safety Report 21995624 (Version 1)
Quarter: 2023Q1

REPORT INFORMATION
  Report Type: Report from Study
  Country: ZA (occurrence: None)
  Receive Date: 20230215
  Receipt Date: 20230215
  Transmission Date: 20230418
  Serious: Yes (Hospitalization)
  Sender: FDA-Public Use
  Company Number: 2023A033345

PATIENT
  Age: 75 Year
  Sex: Male

DRUGS (6)
  1. BUDESONIDE\FORMOTEROL [Suspect]
     Active Substance: BUDESONIDE\FORMOTEROL
     Indication: Asthma
     Dosage: 160.0UG/INHAL UNKNOWN
     Route: 055
  2. ALPHAGAN P [Concomitant]
     Active Substance: BRIMONIDINE TARTRATE
     Indication: Glaucoma
     Route: 047
  3. LATANOPROST [Concomitant]
     Active Substance: LATANOPROST
     Indication: Glaucoma
     Route: 047
  4. ATORVASTATIN [Concomitant]
     Active Substance: ATORVASTATIN
     Indication: Blood cholesterol
     Route: 048
  5. EPITOZ [Concomitant]
     Indication: Epilepsy
     Route: 048
  6. ASTHAVENT ECOHALER [Concomitant]
     Indication: Asthma
     Dosage: 100UG/INHAL
     Route: 055

REACTIONS (3)
  - Oedema peripheral [Unknown]
  - Skin ulcer [Unknown]
  - Renal disorder [Unknown]
